FAERS Safety Report 6107257-X (Version None)
Quarter: 2009Q1

REPORT INFORMATION
  Report Type: 
  Country: None (occurrence: None)
  Receive Date: 20090309
  Receipt Date: 20090302
  Transmission Date: 20090719
  Serious: Yes (Life-Threatening)
  Sender: FDA-Public Use
  Company Number: DE-BRISTOL-MYERS SQUIBB COMPANY-14532162

PATIENT
  Age: 76 Year
  Sex: Male

DRUGS (7)
  1. METFORMIN HCL [Suspect]
     Indication: TYPE 2 DIABETES MELLITUS
     Route: 048
     Dates: start: 20071201, end: 20081126
  2. AMARYL [Suspect]
     Indication: TYPE 2 DIABETES MELLITUS
     Dosage: FORMATION: TABLET
     Route: 048
     Dates: start: 20071201, end: 20081126
  3. ASPIRIN [Suspect]
     Indication: PROPHYLAXIS
     Route: 048
     Dates: end: 20081126
  4. DELIX [Suspect]
     Indication: HYPERTENSION
     Dosage: FORMULATION: TABLET
     Route: 048
  5. LOCOL [Suspect]
     Indication: HYPERCHOLESTEROLAEMIA
     Route: 048
     Dates: end: 20081125
  6. BELOC-ZOK [Concomitant]
     Indication: HYPERTENSION
     Dosage: FORM: TABLET 95MG IN THE MORNING 47.5MG IN THE EVENING
     Route: 048
  7. BERLTHYROX [Concomitant]
     Indication: HYPOTHYROIDISM

REACTIONS (3)
  - HYPOGLYCAEMIA [None]
  - RENAL FAILURE ACUTE [None]
  - RHABDOMYOLYSIS [None]
